FAERS Safety Report 19646724 (Version 2)
Quarter: 2021Q4

REPORT INFORMATION
  Report Type: Spontaneous
  Country: US (occurrence: US)
  Receive Date: 20210802
  Receipt Date: 20211103
  Transmission Date: 20220303
  Serious: No
  Sender: FDA-Public Use
  Company Number: US-EYEPOINT PHARMACEUTICALS, INC.-US-EYP-21-00079

PATIENT
  Sex: Female

DRUGS (1)
  1. YUTIQ [Suspect]
     Active Substance: FLUOCINOLONE ACETONIDE
     Indication: Product used for unknown indication
     Route: 031

REACTIONS (5)
  - Corneal thinning [Unknown]
  - Needle issue [Unknown]
  - Product quality issue [Unknown]
  - Product dose omission issue [Unknown]
  - Refusal of treatment by patient [Unknown]
